FAERS Safety Report 21248675 (Version 2)
Quarter: 2022Q3

REPORT INFORMATION
  Report Type: Report from Study
  Country: DE (occurrence: DE)
  Receive Date: 20220824
  Receipt Date: 20220914
  Transmission Date: 20221027
  Serious: Yes (Other)
  Sender: FDA-Public Use
  Company Number: DE-TAKEDA-2022TUS058471

PATIENT
  Age: 65 Year
  Sex: Female

DRUGS (20)
  1. LANADELUMAB [Suspect]
     Active Substance: LANADELUMAB
     Indication: Hereditary angioedema
     Dosage: 200 MILLIGRAM, Q2WEEKS
     Route: 065
     Dates: start: 20200422, end: 20200526
  2. LANADELUMAB [Suspect]
     Active Substance: LANADELUMAB
     Dosage: 200 MILLIGRAM, Q2WEEKS
     Route: 065
     Dates: start: 20200527, end: 20200807
  3. LANADELUMAB [Suspect]
     Active Substance: LANADELUMAB
     Dosage: 200 MILLIGRAM, Q2WEEKS
     Route: 065
     Dates: start: 20200808
  4. LERCANIDIPINE [Concomitant]
     Active Substance: LERCANIDIPINE
     Dosage: UNK
     Route: 065
     Dates: start: 20160509
  5. METFORMIN HYDROCHLORIDE\SAXAGLIPTIN [Concomitant]
     Active Substance: METFORMIN HYDROCHLORIDE\SAXAGLIPTIN
     Dosage: UNK
     Route: 065
     Dates: start: 20151007
  6. XIPAMIDE [Concomitant]
     Active Substance: XIPAMIDE
     Dosage: UNK
     Route: 065
     Dates: start: 2013
  7. ENOXAPARIN SODIUM [Concomitant]
     Active Substance: ENOXAPARIN SODIUM
     Dosage: UNK
     Route: 065
     Dates: start: 20201024
  8. METAMIZOL [Concomitant]
     Active Substance: METAMIZOLE SODIUM
     Dosage: UNK
     Route: 065
     Dates: start: 20201024
  9. OZEMPIC [Concomitant]
     Active Substance: SEMAGLUTIDE
     Dosage: UNK
     Route: 065
     Dates: start: 20201129
  10. OZEMPIC [Concomitant]
     Active Substance: SEMAGLUTIDE
     Dosage: UNK
     Route: 065
     Dates: start: 20201004
  11. OZEMPIC [Concomitant]
     Active Substance: SEMAGLUTIDE
     Dosage: UNK
     Route: 065
     Dates: start: 20171101
  12. ANTI INFLAMMATORY [Concomitant]
     Dosage: UNK
     Route: 065
     Dates: start: 20180303
  13. COMIRNATY [Concomitant]
     Active Substance: TOZINAMERAN
     Dosage: UNK
     Route: 065
     Dates: start: 20211202
  14. COMIRNATY [Concomitant]
     Active Substance: TOZINAMERAN
     Dosage: UNK
     Route: 065
     Dates: start: 20210104
  15. COMIRNATY [Concomitant]
     Active Substance: TOZINAMERAN
     Dosage: UNK
     Route: 065
     Dates: start: 20210519
  16. COMIRNATY [Concomitant]
     Active Substance: TOZINAMERAN
     Dosage: UNK
     Route: 065
     Dates: start: 20210405
  17. METAMIZOLE [Concomitant]
     Active Substance: METAMIZOLE
     Dosage: UNK
     Route: 065
     Dates: start: 20211221
  18. PANTOPRAZOLE SODIUM [Concomitant]
     Active Substance: PANTOPRAZOLE SODIUM
     Dosage: UNK
     Route: 065
     Dates: start: 20211221
  19. BUDESONIDE [Concomitant]
     Active Substance: BUDESONIDE
     Dosage: UNK
     Route: 065
     Dates: start: 20220520
  20. AMOXICILLIN [Concomitant]
     Active Substance: AMOXICILLIN
     Dosage: UNK
     Route: 065
     Dates: start: 20220521

REACTIONS (1)
  - Cataract [Recovered/Resolved]

NARRATIVE: CASE EVENT DATE: 20220602
